FAERS Safety Report 15791236 (Version 2)
Quarter: 2019Q2

REPORT INFORMATION
  Report Type: Spontaneous
  Country: LT (occurrence: LT)
  Receive Date: 20190104
  Receipt Date: 20190521
  Transmission Date: 20190711
  Serious: Yes (Hospitalization, Other)
  Sender: FDA-Public Use
  Company Number: LT-MYLANLABS-2018M1097909

PATIENT
  Age: 40 Year
  Sex: Male
  Weight: 110 kg

DRUGS (8)
  1. FENTANYL. [Suspect]
     Active Substance: FENTANYL
     Indication: ANAESTHESIA
     Dosage: 1 MICROGRAM/KILOGRAM
     Route: 042
  2. THIOPENTAL SODIUM. [Suspect]
     Active Substance: THIOPENTAL SODIUM
     Indication: GENERAL ANAESTHESIA
     Dosage: 500 MILLIGRAM
     Route: 065
  3. DIAZEPAM. [Concomitant]
     Active Substance: DIAZEPAM
     Indication: PREMEDICATION
     Route: 065
  4. METRONIDAZOLE. [Concomitant]
     Active Substance: METRONIDAZOLE
     Dosage: 500 MILLIGRAM
  5. SUCCINYL [Suspect]
     Active Substance: SUCCINYLCHOLINE CHLORIDE
     Indication: GENERAL ANAESTHESIA
     Dosage: 100 MILLIGRAM
     Route: 065
  6. KETAMINE [Suspect]
     Active Substance: KETAMINE
     Indication: ANAESTHESIA
     Dosage: 2 MILLIGRAM/KILOGRAM
     Route: 042
  7. MORPHINE HYDROCHLORIDE [Concomitant]
     Active Substance: MORPHINE HYDROCHLORIDE
     Dosage: 10 MILLIGRAM
  8. KETAMINE [Suspect]
     Active Substance: KETAMINE
     Dosage: 200 MILLIGRAM
     Route: 042

REACTIONS (7)
  - Pulmonary haemorrhage [Unknown]
  - Upper airway obstruction [Recovering/Resolving]
  - Airway complication of anaesthesia [Recovering/Resolving]
  - Haemoptysis [Unknown]
  - Pulmonary oedema [Recovered/Resolved]
  - Interstitial lung disease [Recovering/Resolving]
  - Cyanosis [Unknown]
